FAERS Safety Report 6878510-7 (Version None)
Quarter: 2010Q3

REPORT INFORMATION
  Report Type: 
  Country: None (occurrence: None)
  Receive Date: 20100728
  Receipt Date: 20100716
  Transmission Date: 20110219
  Serious: Yes (Other)
  Sender: FDA-Public Use
  Company Number: JP-PFIZER INC-2010089932

PATIENT

DRUGS (1)
  1. CHAMPIX [Suspect]

REACTIONS (2)
  - ARTHROPATHY [None]
  - DERMAL CYST [None]
